FAERS Safety Report 5219120-7 (Version None)
Quarter: 2007Q1

REPORT INFORMATION
  Report Type: 
  Country: None (occurrence: None)
  Receive Date: 20061121
  Receipt Date: 20060911
  Transmission Date: 20070707
  Serious: No
  Sender: FDA-Public Use
  Company Number: TPA2006A01563

PATIENT
  Sex: Female

DRUGS (1)
  1. ROZEREM [Suspect]

REACTIONS (2)
  - PARANOIA [None]
  - THINKING ABNORMAL [None]
